FAERS Safety Report 7075257-1 (Version None)
Quarter: 2010Q4

REPORT INFORMATION
  Report Type: 
  Country: None (occurrence: None)
  Receive Date: 20101030
  Receipt Date: 20100913
  Transmission Date: 20110411
  Serious: No
  Sender: FDA-Public Use
  Company Number: US-WYE-H16454210

PATIENT
  Sex: Female
  Weight: 90.8 kg

DRUGS (5)
  1. PRISTIQ [Suspect]
     Indication: ANXIETY
     Dates: start: 20100705
  2. PRISTIQ [Suspect]
     Indication: DIZZINESS
  3. PRISTIQ [Suspect]
     Indication: MIGRAINE
  4. TRIAMTERENE AND HYDROCHLOROTHIAZIDE [Concomitant]
  5. LEVOTHYROXINE [Concomitant]

REACTIONS (2)
  - HEADACHE [None]
  - INSOMNIA [None]
